FAERS Safety Report 4577043-0 (Version None)
Quarter: 2005Q1

REPORT INFORMATION
  Report Type: 
  Country: None (occurrence: None)
  Receive Date: 20050208
  Receipt Date: 20050126
  Transmission Date: 20050727
  Serious: Yes (Hospitalization)
  Sender: FDA-Public Use
  Company Number: 205627

PATIENT
  Age: 58 Year
  Sex: Female

DRUGS (12)
  1. AVONEX [Suspect]
     Indication: MULTIPLE SCLEROSIS
     Dosage: 30 UG QW IM
     Route: 030
     Dates: start: 20040106
  2. ALLOPURINOL [Concomitant]
  3. NORVASC [Concomitant]
  4. TIZANIDINE HCL [Concomitant]
  5. ZOLOFT [Concomitant]
  6. DIOVAN HCT [Concomitant]
  7. BUMEX [Concomitant]
  8. TOPROL-XL [Concomitant]
  9. PERCOCET [Concomitant]
  10. CYANCOBALAMIN [Concomitant]
  11. SYNTHROID [Concomitant]
  12. METOLAZONE [Concomitant]

REACTIONS (2)
  - RENAL DISORDER [None]
  - SKIN ULCER [None]
